FAERS Safety Report 18156401 (Version 1)
Quarter: 2020Q3

REPORT INFORMATION
  Report Type: Spontaneous
  Country: US (occurrence: US)
  Receive Date: 20200815
  Receipt Date: 20200815
  Transmission Date: 20201103
  Serious: No
  Sender: FDA-Public Use
  Company Number: None

PATIENT
  Age: 68 Year
  Sex: Female
  Weight: 87.75 kg

DRUGS (3)
  1. ALISKIRIN [Concomitant]
  2. NP THYROID [Suspect]
     Active Substance: LEVOTHYROXINE\LIOTHYRONINE
     Indication: HYPOTHYROIDISM
     Dosage: ?          QUANTITY:90 TABLET(S);?
     Route: 048
     Dates: start: 20190901, end: 20200813
  3. MULTI?VITAMINS [Concomitant]

REACTIONS (5)
  - Malaise [None]
  - Recalled product administered [None]
  - Fatigue [None]
  - Tri-iodothyronine free abnormal [None]
  - Alopecia [None]

NARRATIVE: CASE EVENT DATE: 20200101
